FAERS Safety Report 4668230-1 (Version None)
Quarter: 2005Q2

REPORT INFORMATION
  Report Type: 
  Country: None (occurrence: None)
  Receive Date: 20050523
  Receipt Date: 20050223
  Transmission Date: 20051028
  Serious: Yes (Other)
  Sender: FDA-Public Use
  Company Number: PHEH2005US02418

PATIENT
  Age: 68 Year
  Sex: Female

DRUGS (11)
  1. MS CONTIN [Concomitant]
  2. VERAPAMIL [Concomitant]
  3. DIOVAN [Concomitant]
  4. LASIX [Concomitant]
  5. PREVACID [Concomitant]
  6. COMPAZINE [Concomitant]
  7. PROMETHAZINE [Concomitant]
  8. AVANDIA [Concomitant]
  9. TEMAZEPAM [Concomitant]
  10. CYCOBENZEPRINE [Concomitant]
  11. ZOMETA [Suspect]
     Indication: MULTIPLE MYELOMA
     Route: 042
     Dates: start: 19960101, end: 20050216

REACTIONS (4)
  - BONE DISORDER [None]
  - JAW DISORDER [None]
  - OSTEONECROSIS [None]
  - PAIN IN JAW [None]
